FAERS Safety Report 8558011-0 (Version None)
Quarter: 2012Q3

REPORT INFORMATION
  Report Type: 
  Country: None (occurrence: None)
  Receive Date: 20120801
  Receipt Date: 20120724
  Transmission Date: 20120928
  Serious: Yes (Hospitalization)
  Sender: FDA-Public Use
  Company Number: US-CELGENEUS-163-20785-12072616

PATIENT
  Sex: Male
  Weight: 75 kg

DRUGS (10)
  1. GLUCOPHAGE [Concomitant]
     Dosage: 1000 MILLIGRAM
     Route: 065
  2. LISINOPRIL [Concomitant]
     Dosage: 20 MILLIGRAM
     Route: 065
  3. THALOMID [Suspect]
     Dosage: 50 MILLIGRAM
     Route: 048
     Dates: start: 20101201
  4. THALOMID [Suspect]
     Dosage: 100 MILLIGRAM
     Route: 048
     Dates: start: 20110201
  5. THALOMID [Suspect]
     Dosage: 50 MILLIGRAM
     Route: 048
     Dates: start: 20110301
  6. METOPROLOL TARTRATE [Concomitant]
     Dosage: 100 MILLIGRAM
     Route: 065
  7. LIPITOR [Concomitant]
     Dosage: 10 MILLIGRAM
     Route: 065
  8. M.V.I. [Concomitant]
     Route: 065
  9. THALOMID [Suspect]
     Indication: MULTIPLE MYELOMA
     Dosage: 100 MILLIGRAM
     Route: 048
     Dates: start: 20100301
  10. FINASTERIDE [Concomitant]
     Dosage: 5 MILLIGRAM
     Route: 065

REACTIONS (1)
  - CHOLECYSTITIS ACUTE [None]
